FAERS Safety Report 5370717-3 (Version None)
Quarter: 2007Q2

REPORT INFORMATION
  Report Type: 
  Country: None (occurrence: None)
  Receive Date: 20070614
  Receipt Date: 20070330
  Transmission Date: 20071010
  Serious: No
  Sender: FDA-Public Use
  Company Number: BDI-009324

PATIENT
  Age: 57 Year
  Sex: Female

DRUGS (1)
  1. MULTIHANCE [Suspect]
     Indication: RENAL CYST
     Dosage: 10 ML ONCE IV
     Route: 042
     Dates: start: 20070329, end: 20070329

REACTIONS (3)
  - NAUSEA [None]
  - URTICARIA [None]
  - VOMITING [None]
